FAERS Safety Report 19488231 (Version 1)
Quarter: 2021Q3

REPORT INFORMATION
  Report Type: Spontaneous
  Country: US (occurrence: US)
  Receive Date: 20210702
  Receipt Date: 20210702
  Transmission Date: 20211014
  Serious: No
  Sender: FDA-Public Use
  Company Number: US-BIOCRYST-2021BCR00174

PATIENT
  Sex: Female

DRUGS (1)
  1. ORLADEYO [Suspect]
     Active Substance: BEROTRALSTAT HYDROCHLORIDE
     Route: 048

REACTIONS (6)
  - Palpitations [Unknown]
  - Diarrhoea [Unknown]
  - Faeces pale [Unknown]
  - Constipation [Unknown]
  - Food refusal [Unknown]
  - Abdominal pain upper [Unknown]
